FAERS Safety Report 7709836-2 (Version None)
Quarter: 2011Q3

REPORT INFORMATION
  Report Type: 
  Country: None (occurrence: None)
  Receive Date: 20110825
  Receipt Date: 20110819
  Transmission Date: 20111222
  Serious: Yes (Hospitalization)
  Sender: FDA-Public Use
  Company Number: FR-MERCK-1108FRA00087

PATIENT
  Age: 65 Year
  Sex: Female

DRUGS (5)
  1. TRUSOPT [Suspect]
     Route: 047
     Dates: start: 20110812
  2. PRISTINAMYCIN [Concomitant]
     Indication: INFECTION
     Route: 048
     Dates: start: 20110809, end: 20110809
  3. DESLORATADINE [Concomitant]
     Route: 065
  4. TRUSOPT [Suspect]
     Indication: GLAUCOMA
     Route: 047
     Dates: start: 20110513, end: 20110809
  5. SIMVASTATIN [Concomitant]
     Route: 048

REACTIONS (2)
  - EYE IRRITATION [None]
  - ANAPHYLACTIC SHOCK [None]
